FAERS Safety Report 9792311 (Version 2)
Quarter: 2014Q1

REPORT INFORMATION
  Report Type: Report from Study
  Country: JP (occurrence: JP)
  Receive Date: 20140102
  Receipt Date: 20140317
  Transmission Date: 20141002
  Serious: Yes (Hospitalization)
  Sender: FDA-Public Use
  Company Number: PHHY2013JP154049

PATIENT
  Age: 34 Year
  Sex: Male
  Weight: 54 kg

DRUGS (8)
  1. FTY 720 [Suspect]
     Indication: MULTIPLE SCLEROSIS
     Dosage: 0.5 MG, QD
     Route: 048
     Dates: start: 20120203
  2. TAKEPRON [Concomitant]
     Indication: PROPHYLAXIS
     Dosage: 30 MG, UNK
     Route: 048
  3. MINZAIN [Concomitant]
     Indication: PROPHYLAXIS
     Dosage: 0.25 MG, UNK
     Route: 048
  4. ROZEREM [Concomitant]
     Indication: PROPHYLAXIS
     Dosage: 8 MG, UNK
     Route: 048
  5. JZOLOFT [Concomitant]
     Indication: PROPHYLAXIS
     Dosage: 25 MG, UNK
     Route: 048
  6. LYRICA [Concomitant]
     Indication: PROPHYLAXIS
     Dosage: 150 MG, UNK
     Route: 048
     Dates: end: 20120618
  7. DEPAKENE-R [Concomitant]
     Indication: EPILEPSY
     Dosage: 600 MG, UNK
     Route: 048
  8. E KEPPRA [Concomitant]
     Indication: EPILEPSY
     Dosage: 1000 MG, UNK
     Route: 048
     Dates: start: 20120421

REACTIONS (1)
  - Epilepsy [Recovering/Resolving]
